FAERS Safety Report 5045094-8 (Version None)
Quarter: 2006Q3

REPORT INFORMATION
  Report Type: 
  Country: None (occurrence: None)
  Receive Date: 20060707
  Receipt Date: 20060629
  Transmission Date: 20061208
  Serious: Yes (Other)
  Sender: FDA-Public Use
  Company Number: FR-JNJFOC-20060603776

PATIENT
  Sex: Female
  Weight: 60 kg

DRUGS (4)
  1. EPITOMAX [Suspect]
     Indication: MIGRAINE PROPHYLAXIS
     Route: 048
  2. CLAMOXYL [Concomitant]
     Indication: BRONCHITIS ACUTE
  3. ORELOX [Concomitant]
     Indication: BRONCHITIS ACUTE
  4. AUGMENTIN '125' [Concomitant]
     Indication: BRONCHITIS ACUTE

REACTIONS (3)
  - ABORTION SPONTANEOUS [None]
  - DRUG EXPOSURE BEFORE PREGNANCY [None]
  - DRUG EXPOSURE DURING PREGNANCY [None]
